FAERS Safety Report 19470757 (Version 1)
Quarter: 2021Q2

REPORT INFORMATION
  Report Type: Spontaneous
  Country: US (occurrence: US)
  Receive Date: 20210628
  Receipt Date: 20210628
  Transmission Date: 20210717
  Serious: Yes (Other)
  Sender: FDA-Public Use
  Company Number: US-BAYER-2021-165893

PATIENT
  Sex: Male

DRUGS (2)
  1. KOGENATE FS [Suspect]
     Active Substance: ANTIHEMOPHILIC FACTOR, HUMAN RECOMBINANT
     Dosage: 3800 U, TWICE WEEKLY/AS NEEDED
     Route: 042
     Dates: start: 20210603
  2. KOGENATE FS [Suspect]
     Active Substance: ANTIHEMOPHILIC FACTOR, HUMAN RECOMBINANT
     Dosage: 4 DF; USED FROM MINOR CALF MUSCLE BLEED, ONE DOSE PER DAY
     Route: 042

REACTIONS (1)
  - Muscle haemorrhage [Recovering/Resolving]
